FAERS Safety Report 17358906 (Version 2)
Quarter: 2020Q3

REPORT INFORMATION
  Report Type: Spontaneous
  Country: JP (occurrence: JP)
  Receive Date: 20200202
  Receipt Date: 20200714
  Transmission Date: 20201102
  Serious: Yes (Hospitalization, Other)
  Sender: FDA-Public Use
  Company Number: NVSC2020JP023687

PATIENT

DRUGS (42)
  1. LAMISIL [Suspect]
     Active Substance: TERBINAFINE HYDROCHLORIDE
     Indication: PRODUCT USED FOR UNKNOWN INDICATION
     Dosage: 1 DF
     Route: 065
     Dates: start: 20180927
  2. PREDNISOLONE. [Suspect]
     Active Substance: PREDNISOLONE
     Dosage: 24 MG, QD
     Route: 048
     Dates: start: 20180330, end: 20180524
  3. PREDNISOLONE. [Suspect]
     Active Substance: PREDNISOLONE
     Dosage: 22.5 MG, QD
     Route: 048
     Dates: start: 20180622, end: 20180816
  4. PREDNISOLONE. [Suspect]
     Active Substance: PREDNISOLONE
     Dosage: 15 MG, QD
     Route: 048
     Dates: start: 20181103, end: 20181113
  5. FUNGUARD [Suspect]
     Active Substance: MICAFUNGIN SODIUM
     Indication: SYSTEMIC MYCOSIS
     Dosage: 150 MG, QD
     Route: 065
     Dates: start: 20181005
  6. BELIMUMAB [Suspect]
     Active Substance: BELIMUMAB
     Dosage: UNK
     Route: 041
     Dates: start: 20180308
  7. PREDNISOLONE. [Suspect]
     Active Substance: PREDNISOLONE
     Dosage: 30 MG, QD
     Route: 048
     Dates: start: 20180202, end: 20180222
  8. PREDNISOLONE. [Suspect]
     Active Substance: PREDNISOLONE
     Dosage: 23 MG, QD
     Route: 048
     Dates: start: 20180525, end: 20180621
  9. PREDNISOLONE. [Suspect]
     Active Substance: PREDNISOLONE
     Dosage: 14 MG, QD
     Route: 048
     Dates: start: 20181114
  10. BELIMUMAB [Suspect]
     Active Substance: BELIMUMAB
     Indication: PRODUCT USED FOR UNKNOWN INDICATION
     Dosage: 1 DF, BIW
     Route: 041
     Dates: start: 20180119, end: 20180216
  11. LOXONIN [Concomitant]
     Active Substance: LOXOPROFEN SODIUM
     Indication: PRODUCT USED FOR UNKNOWN INDICATION
     Dosage: UNK
     Route: 065
  12. BASEN [Concomitant]
     Indication: PRODUCT USED FOR UNKNOWN INDICATION
     Dosage: UNK
     Route: 065
  13. PREDNISOLONE. [Suspect]
     Active Substance: PREDNISOLONE
     Indication: SYSTEMIC LUPUS ERYTHEMATOSUS
     Dosage: 30 MG, QD
     Route: 048
     Dates: start: 20180119, end: 20180122
  14. PREDNISOLONE. [Suspect]
     Active Substance: PREDNISOLONE
     Dosage: 22 MG, QD
     Route: 048
     Dates: start: 20181001, end: 20181004
  15. FUNGUARD [Suspect]
     Active Substance: MICAFUNGIN SODIUM
     Dosage: 250 MG, QD
     Route: 065
     Dates: start: 20181015
  16. FUNGUARD [Suspect]
     Active Substance: MICAFUNGIN SODIUM
     Dosage: 300 MG, QD
     Route: 065
     Dates: start: 20181018, end: 20181106
  17. FERROMIA [Concomitant]
     Active Substance: SODIUM FERROUS CITRATE
     Indication: PRODUCT USED FOR UNKNOWN INDICATION
     Dosage: UNK
     Route: 065
  18. LENDORMIN [Concomitant]
     Active Substance: BROTIZOLAM
     Indication: PRODUCT USED FOR UNKNOWN INDICATION
     Dosage: UNK
     Route: 065
  19. INFLUENZA HA [Concomitant]
     Indication: PRODUCT USED FOR UNKNOWN INDICATION
     Dosage: UNK
     Route: 065
  20. LAMISIL [Suspect]
     Active Substance: TERBINAFINE HYDROCHLORIDE
     Dosage: 250 MG, QD
     Route: 065
     Dates: start: 20181002, end: 20181005
  21. PREDNISOLONE. [Suspect]
     Active Substance: PREDNISOLONE
     Dosage: 26 MG, QD
     Route: 048
     Dates: start: 20180316, end: 20180329
  22. PREDNISOLONE. [Suspect]
     Active Substance: PREDNISOLONE
     Dosage: 23 MG, QD
     Route: 048
     Dates: start: 20180817, end: 20180930
  23. PREDNISOLONE. [Suspect]
     Active Substance: PREDNISOLONE
     Dosage: 20 MG, QD
     Route: 048
     Dates: start: 20181008, end: 20181010
  24. ITRACONAZOLE. [Suspect]
     Active Substance: ITRACONAZOLE
     Indication: CHROMOBLASTOMYCOSIS
     Dosage: 100 MG, QD
     Route: 065
     Dates: start: 20180731, end: 20180929
  25. AMBISOME [Suspect]
     Active Substance: AMPHOTERICIN B
     Indication: SYSTEMIC MYCOSIS
     Dosage: 150 MG
     Route: 065
     Dates: start: 20181020, end: 20181106
  26. EDIROL [Concomitant]
     Active Substance: ELDECALCITOL
     Indication: PRODUCT USED FOR UNKNOWN INDICATION
     Dosage: UNK
     Route: 065
  27. PLAQUENIL [Concomitant]
     Active Substance: HYDROXYCHLOROQUINE SULFATE
     Indication: SYSTEMIC LUPUS ERYTHEMATOSUS
     Dosage: UNK
     Route: 065
  28. PREDNISOLONE. [Suspect]
     Active Substance: PREDNISOLONE
     Dosage: 18 MG, QD
     Route: 048
     Dates: start: 20181014, end: 20181019
  29. FOLIAMIN [Concomitant]
     Active Substance: FOLIC ACID
     Indication: PROPHYLAXIS
     Dosage: UNK
     Route: 065
  30. PREDNISOLONE. [Suspect]
     Active Substance: PREDNISOLONE
     Dosage: 21 MG, QD
     Route: 048
     Dates: start: 20181005, end: 20181007
  31. PREDNISOLONE. [Suspect]
     Active Substance: PREDNISOLONE
     Dosage: 17 MG, QD
     Route: 048
     Dates: start: 20181020, end: 20181026
  32. BELIMUMAB [Suspect]
     Active Substance: BELIMUMAB
     Dosage: 1 DF, QID
     Route: 041
     Dates: start: 20180330, end: 20180817
  33. TAKEPRON [Concomitant]
     Active Substance: LANSOPRAZOLE
     Indication: PROPHYLAXIS AGAINST GASTROINTESTINAL ULCER
     Dosage: UNK
     Route: 065
  34. BONALON [Concomitant]
     Active Substance: ALENDRONATE SODIUM
     Indication: PRODUCT USED FOR UNKNOWN INDICATION
     Dosage: UNK
     Route: 065
  35. PREDNISOLONE. [Suspect]
     Active Substance: PREDNISOLONE
     Dosage: 19 MG, QD
     Route: 048
     Dates: start: 20181011, end: 20181013
  36. ITRACONAZOLE. [Suspect]
     Active Substance: ITRACONAZOLE
     Indication: SYSTEMIC MYCOSIS
     Dosage: 200 MG, QD
     Route: 065
     Dates: start: 20180914, end: 20180927
  37. AMBISOME [Suspect]
     Active Substance: AMPHOTERICIN B
     Indication: CHROMOBLASTOMYCOSIS
  38. RHEUMATREX [Suspect]
     Active Substance: METHOTREXATE SODIUM
     Indication: SYSTEMIC LUPUS ERYTHEMATOSUS
     Dosage: UNK
     Route: 048
  39. PREDNISOLONE. [Suspect]
     Active Substance: PREDNISOLONE
     Dosage: 25 MG, QD
     Route: 065
     Dates: start: 20180123, end: 20180201
  40. PREDNISOLONE. [Suspect]
     Active Substance: PREDNISOLONE
     Dosage: 28 MG, QD
     Route: 048
     Dates: start: 20180223, end: 20180315
  41. PREDNISOLONE. [Suspect]
     Active Substance: PREDNISOLONE
     Dosage: 16 MG, QD
     Route: 048
     Dates: start: 20181027, end: 20181102
  42. FUNGUARD [Suspect]
     Active Substance: MICAFUNGIN SODIUM
     Indication: CHROMOBLASTOMYCOSIS
     Dosage: 200 MG, QD
     Route: 065
     Dates: start: 20181013

REACTIONS (7)
  - Hepatic function abnormal [Unknown]
  - Inappropriate schedule of product administration [Unknown]
  - Upper respiratory tract inflammation [Recovered/Resolved]
  - Liver disorder [Recovered/Resolved]
  - Systemic mycosis [Not Recovered/Not Resolved]
  - Upper respiratory tract inflammation [Recovered/Resolved]
  - Chromoblastomycosis [Not Recovered/Not Resolved]

NARRATIVE: CASE EVENT DATE: 20180202
